FAERS Safety Report 23941031 (Version 2)
Quarter: 2024Q2

REPORT INFORMATION
  Report Type: Spontaneous
  Country: US (occurrence: US)
  Receive Date: 20240605
  Receipt Date: 20240615
  Transmission Date: 20240716
  Serious: Yes (Other)
  Sender: FDA-Public Use
  Company Number: US-MLMSERVICE-20240515-PI063377-00163-1

PATIENT
  Age: 66 Year
  Sex: Male

DRUGS (5)
  1. GABAPENTIN [Interacting]
     Active Substance: GABAPENTIN
     Indication: Neuralgia
     Dosage: UNK
     Route: 065
  2. MIDODRINE HYDROCHLORIDE [Interacting]
     Active Substance: MIDODRINE HYDROCHLORIDE
     Indication: Hepatorenal syndrome
     Dosage: 10 MILLIGRAM, 3 TIMES A DAY
     Route: 048
  3. ALBUMIN HUMAN [Concomitant]
     Active Substance: ALBUMIN HUMAN
     Indication: Hepatorenal syndrome
     Dosage: 25 GRAM, TWO TIMES A DAY
     Route: 042
  4. ASPIRIN [Concomitant]
     Active Substance: ASPIRIN
     Indication: Product used for unknown indication
     Dosage: UNK
     Route: 065
  5. OCTREOTIDE [Concomitant]
     Active Substance: OCTREOTIDE\OCTREOTIDE ACETATE
     Indication: Hepatorenal syndrome
     Dosage: 100 MICROGRAM, 3 TIMES A DAY
     Route: 058

REACTIONS (5)
  - Nephropathy toxic [Recovered/Resolved]
  - Urinary retention [Unknown]
  - Acute kidney injury [Unknown]
  - Drug interaction [Recovered/Resolved]
  - Drug ineffective [Unknown]
